FAERS Safety Report 6371718-9 (Version None)
Quarter: 2009Q3

REPORT INFORMATION
  Report Type: 
  Country: None (occurrence: None)
  Receive Date: 20090923
  Receipt Date: 20090909
  Transmission Date: 20100115
  Serious: Yes (Other)
  Sender: FDA-Public Use
  Company Number: ES-PFIZER INC-2009266167

PATIENT
  Age: 40 Year

DRUGS (12)
  1. NELFINAVIR MESILATE [Suspect]
     Indication: HIV INFECTION
  2. ZIDOVUDINE [Suspect]
     Indication: HIV INFECTION
  3. STAVUDINE [Suspect]
     Indication: HIV INFECTION
  4. NEVIRAPINE [Suspect]
     Indication: HIV INFECTION
  5. DIDANOSINE [Suspect]
     Indication: HIV INFECTION
  6. LAMIVUDINE [Suspect]
     Indication: HIV INFECTION
  7. TENOFOVIR [Suspect]
     Indication: HIV INFECTION
  8. EMTRICITABINE [Suspect]
     Indication: HIV INFECTION
  9. EFAVIRENZ [Suspect]
     Indication: HIV INFECTION
  10. LOPINAVIR [Suspect]
     Indication: HIV INFECTION
  11. RITONAVIR [Suspect]
  12. FOSAMPRENAVIR [Suspect]
     Indication: HIV INFECTION

REACTIONS (1)
  - PORTAL HYPERTENSION [None]
